FAERS Safety Report 9319251 (Version 1)
Quarter: 2013Q2

REPORT INFORMATION
  Report Type: Spontaneous
  Country: US (occurrence: None)
  Receive Date: 20130523
  Receipt Date: 20130523
  Transmission Date: 20140414
  Serious: Yes (Other)
  Sender: FDA-Public Use
  Company Number: E2B_00000836

PATIENT
  Age: 47 Year
  Sex: Female
  Weight: 83.92 kg

DRUGS (8)
  1. LOVASTATIN [Suspect]
     Indication: BLOOD CHOLESTEROL INCREASED
     Route: 048
     Dates: start: 2011
  2. LOSARTAN (LOSARTAN) [Concomitant]
  3. DESVENLAFAXINE (PRISTIQ) [Concomitant]
  4. TOPIRAMATE (TOPAMAX) [Concomitant]
  5. SINGULAIR [Concomitant]
  6. CETIRIZINE (ZYRTEC) [Concomitant]
  7. FEXOFENADINE (ALLEGRA) [Concomitant]
  8. RANITIDINE [Concomitant]

REACTIONS (1)
  - Coeliac disease [None]
